FAERS Safety Report 23432398 (Version 1)
Quarter: 2024Q1

REPORT INFORMATION
  Report Type: Spontaneous
  Country: US (occurrence: None)
  Receive Date: 20240122
  Receipt Date: 20240122
  Transmission Date: 20240410
  Serious: No
  Sender: FDA-Public Use
  Company Number: None

PATIENT
  Age: 55 Year
  Sex: Female
  Weight: 74.84 kg

DRUGS (1)
  1. TALTZ [Suspect]
     Active Substance: IXEKIZUMAB
     Indication: Psoriasis
     Dosage: FREQUENCY : MONTHLY;?
     Route: 058
     Dates: start: 202108

REACTIONS (2)
  - Colonic abscess [None]
  - Diverticulitis [None]
